FAERS Safety Report 8187217-8 (Version None)
Quarter: 2012Q1

REPORT INFORMATION
  Report Type: 
  Country: None (occurrence: None)
  Receive Date: 20120306
  Receipt Date: 20120227
  Transmission Date: 20120608
  Serious: Yes (Death)
  Sender: FDA-Public Use
  Company Number: DK-JNJFOC-20120213903

PATIENT
  Sex: Male

DRUGS (1)
  1. REMICADE [Suspect]
     Indication: RHEUMATOID ARTHRITIS
     Dosage: REPORTED AS WEEKS 0,2,4,6,AND 8
     Route: 042
     Dates: start: 20090708

REACTIONS (1)
  - LIP AND/OR ORAL CAVITY CANCER [None]
